FAERS Safety Report 4961224-8 (Version None)
Quarter: 2006Q1

REPORT INFORMATION
  Report Type: 
  Country: None (occurrence: None)
  Receive Date: 20060201
  Receipt Date: 20051027
  Transmission Date: 20060701
  Serious: No
  Sender: FDA-Public Use
  Company Number: 2005PV003667

PATIENT
  Age: 65 Year
  Sex: Female
  Weight: 90.7194 kg

DRUGS (7)
  1. BYETTA [Suspect]
     Indication: DIABETES MELLITUS NON-INSULIN-DEPENDENT
     Dosage: SEE IMAGE
     Route: 058
     Dates: start: 20050916, end: 20051008
  2. BYETTA [Suspect]
     Indication: DIABETES MELLITUS NON-INSULIN-DEPENDENT
     Dosage: SEE IMAGE
     Route: 058
     Dates: start: 20051008
  3. GLUCOTROL [Concomitant]
  4. GLUCOPHAGE [Concomitant]
  5. ACTOS [Concomitant]
  6. FORTEO [Concomitant]
  7. GLUCOSAMINE [Concomitant]

REACTIONS (1)
  - BLOOD GLUCOSE INCREASED [None]
